FAERS Safety Report 8911218 (Version 1)
Quarter: 2012Q4

REPORT INFORMATION
  Report Type: 
  Country: US (occurrence: US)
  Receive Date: 20121116
  Receipt Date: 20121116
  Transmission Date: 20130627
  Serious: No
  Sender: FDA-Public Use
  Company Number: US-GLAXOSMITHKLINE-A0991816A

PATIENT
  Age: 61 Year
  Sex: Female

DRUGS (4)
  1. VOTRIENT [Suspect]
     Indication: RENAL CELL CARCINOMA
     Dosage: 4TAB Per day
     Route: 048
     Dates: start: 2011
  2. VITAMINS [Concomitant]
  3. WHEAT GRASS [Concomitant]
  4. TYLENOL WITH CODEINE [Concomitant]

REACTIONS (8)
  - Dysuria [Unknown]
  - Urinary retention [Unknown]
  - Urinary straining [Unknown]
  - Urinary incontinence [Unknown]
  - Micturition disorder [Unknown]
  - Fatigue [Unknown]
  - Diarrhoea [Unknown]
  - Hair colour changes [Unknown]
